FAERS Safety Report 25321195 (Version 2)
Quarter: 2025Q2

REPORT INFORMATION
  Report Type: Spontaneous
  Country: US (occurrence: US)
  Receive Date: 20250515
  Receipt Date: 20250515
  Transmission Date: 20250716
  Serious: No
  Sender: SANDOZ
  Company Number: US-SANDOZ-SDZ2025US031868

PATIENT
  Age: 28 Year
  Sex: Male

DRUGS (1)
  1. ALBUTEROL SULFATE [Suspect]
     Active Substance: ALBUTEROL SULFATE
     Indication: Asthma
     Dosage: TWO PUFFS BY MOUTH EVERY SIX HOURS
     Route: 055

REACTIONS (3)
  - Cough [Unknown]
  - Wheezing [Unknown]
  - Device defective [Unknown]

NARRATIVE: CASE EVENT DATE: 20250512
